FAERS Safety Report 6821978-2 (Version None)
Quarter: 2010Q3

REPORT INFORMATION
  Report Type: 
  Country: None (occurrence: None)
  Receive Date: 20100707
  Receipt Date: 20100707
  Transmission Date: 20110219
  Serious: Yes (Death)
  Sender: FDA-Public Use
  Company Number: None

PATIENT
  Sex: Female
  Weight: 54.4316 kg

DRUGS (2)
  1. IXABEPILONE [Suspect]
     Indication: BLADDER CANCER
     Dosage: 15MG/M2 DAY 1,8 + 15 IV
     Route: 042
     Dates: start: 20100526, end: 20100602
  2. LAPATINIB [Suspect]
     Indication: BLADDER CANCER
     Dosage: 1000MG DAILY PO
     Route: 048
     Dates: start: 20100526, end: 20100604

REACTIONS (5)
  - CANCER PAIN [None]
  - CONDITION AGGRAVATED [None]
  - FATIGUE [None]
  - MALIGNANT NEOPLASM PROGRESSION [None]
  - METASTATIC CARCINOMA OF THE BLADDER [None]
